FAERS Safety Report 6472053-0 (Version None)
Quarter: 2009Q4

REPORT INFORMATION
  Report Type: 
  Country: None (occurrence: None)
  Receive Date: 20091203
  Receipt Date: 20080402
  Transmission Date: 20100525
  Serious: Yes (Hospitalization, Disabling, Other)
  Sender: FDA-Public Use
  Company Number: TR-ELI_LILLY_AND_COMPANY-TR200804002693

PATIENT
  Sex: Female
  Weight: 92 kg

DRUGS (5)
  1. HUMULIN R [Suspect]
     Indication: TYPE 2 DIABETES MELLITUS
     Dosage: 14 IU, 3/D
     Route: 058
     Dates: start: 19980101
  2. HUMULIN 70/30 [Suspect]
     Indication: TYPE 2 DIABETES MELLITUS
     Dosage: 14 U, AT NIGHT
     Route: 058
     Dates: start: 19980101
  3. DIOVAN HCT [Concomitant]
     Indication: HYPERTENSION
     Dosage: UNK, DAILY (1/D)
  4. METFORMIN HYDROCHLORIDE [Concomitant]
     Indication: DIABETES MELLITUS
     Dosage: UNK, 2/D
  5. PAROL [Concomitant]
     Dosage: UNK, DAILY (1/D)

REACTIONS (3)
  - BLOOD GLUCOSE INCREASED [None]
  - TOE AMPUTATION [None]
  - WOUND [None]
